FAERS Safety Report 5986999-0 (Version None)
Quarter: 2008Q4

REPORT INFORMATION
  Report Type: 
  Country: None (occurrence: None)
  Receive Date: 20081209
  Receipt Date: 20081204
  Transmission Date: 20090506
  Serious: Yes (Death)
  Sender: FDA-Public Use
  Company Number: A0759519A

PATIENT
  Age: 62 Year
  Sex: Male
  Weight: 68 kg

DRUGS (2)
  1. SERETIDE [Suspect]
     Indication: CHRONIC OBSTRUCTIVE PULMONARY DISEASE
     Route: 065
     Dates: start: 20081106, end: 20081106
  2. BAMIFIX [Concomitant]
     Dates: start: 20081106, end: 20081112

REACTIONS (5)
  - COUGH [None]
  - DEATH [None]
  - FLUSHING [None]
  - PULMONARY FIBROSIS [None]
  - PYREXIA [None]
